FAERS Safety Report 13995805 (Version 8)
Quarter: 2018Q2

REPORT INFORMATION
  Report Type: Spontaneous
  Country: JP (occurrence: JP)
  Receive Date: 20170921
  Receipt Date: 20180517
  Transmission Date: 20180711
  Serious: Yes (Hospitalization, Other)
  Sender: FDA-Public Use
  Company Number: JP-009507513-1706JPN001474J

PATIENT
  Age: 64 Year
  Sex: Male
  Weight: 50 kg

DRUGS (8)
  1. PARIET [Concomitant]
     Active Substance: RABEPRAZOLE SODIUM
     Dosage: 1 DF, QD
     Route: 048
     Dates: start: 20170516
  2. LOXOPROFEN [Concomitant]
     Active Substance: LOXOPROFEN
     Dosage: 3 DF, TID
     Route: 048
     Dates: start: 20170508
  3. KEYTRUDA [Suspect]
     Active Substance: PEMBROLIZUMAB
     Indication: NON-SMALL CELL LUNG CANCER STAGE IV
     Dosage: 200 MG, Q3W
     Route: 041
     Dates: start: 20170606, end: 20170627
  4. MIYA-BM [Concomitant]
     Active Substance: CLOSTRIDIUM BUTYRICUM SPORES STRAIN M-55
     Dosage: 3 G, TID
     Route: 048
     Dates: start: 20170526
  5. MAGMITT [Concomitant]
     Active Substance: MAGNESIUM OXIDE
     Dosage: 6 DF, TID
     Route: 048
     Dates: start: 20170511
  6. DAIKENCHUTO [Concomitant]
     Active Substance: HERBALS
     Dosage: 3 DF, TID
     Route: 048
     Dates: start: 20170526
  7. TS-1 [Suspect]
     Active Substance: GIMERACIL\OTERACIL\TEGAFUR
     Indication: NON-SMALL CELL LUNG CANCER STAGE IV
     Dosage: 120 MG, UNK
     Route: 048
     Dates: start: 20170906
  8. FUNGIZONE [Concomitant]
     Active Substance: AMPHOTERICIN B
     Dosage: 4 ML, QID
     Route: 048
     Dates: start: 20170522

REACTIONS (6)
  - Tumour pseudoprogression [Unknown]
  - Decreased appetite [Recovered/Resolved]
  - Hypocalcaemia [Not Recovered/Not Resolved]
  - Pyrexia [Recovering/Resolving]
  - Malaise [Recovered/Resolved]
  - Hypoparathyroidism [Not Recovered/Not Resolved]

NARRATIVE: CASE EVENT DATE: 20170606
